FAERS Safety Report 8519820 (Version 7)
Quarter: 2014Q2

REPORT INFORMATION
  Report Type: Spontaneous
  Country: US (occurrence: US)
  Receive Date: 20120418
  Receipt Date: 20140613
  Transmission Date: 20141212
  Serious: No
  Sender: FDA-Public Use
  Company Number: US-ASTRAZENECA-2012SE01805

PATIENT
  Age: 66 Year
  Sex: Female
  Weight: 68 kg

DRUGS (13)
  1. NEXIUM [Suspect]
     Indication: DYSPEPSIA
     Route: 048
     Dates: start: 201105
  2. NEXIUM [Suspect]
     Indication: GASTROOESOPHAGEAL REFLUX DISEASE
     Route: 048
     Dates: start: 201105
  3. NEXIUM [Suspect]
     Indication: HYPERCHLORHYDRIA
     Route: 048
     Dates: start: 201105
  4. NEXIUM [Suspect]
     Indication: ULCER
     Route: 048
     Dates: start: 201105
  5. NEXIUM [Suspect]
     Indication: ABDOMINAL PAIN UPPER
     Route: 048
     Dates: start: 201105
  6. VIMOVO [Suspect]
     Indication: PAIN
     Dosage: 500/20 MG, TWO TIMES A DAY
     Route: 048
     Dates: start: 201011, end: 201105
  7. CEPHALEXIN [Concomitant]
     Indication: CELLULITIS
  8. HYDROCODONE [Concomitant]
     Indication: PAIN
     Dosage: 7.5/500 MG, TID
     Route: 048
     Dates: start: 2010
  9. HYDROCODONE [Concomitant]
     Indication: SWELLING
     Dosage: 7.5/500 MG, TID
     Route: 048
     Dates: start: 2010
  10. LORAZEPAM [Concomitant]
     Indication: SLEEP DISORDER
     Route: 048
     Dates: start: 1980
  11. FIBER MIXTURE [Concomitant]
     Indication: GASTROINTESTINAL DISORDER
     Dosage: DAILY
     Route: 048
  12. PROBIOTICS [Concomitant]
     Dosage: TWO TIMES A DAY
     Route: 048
  13. OTHER MEDICATIONS [Concomitant]

REACTIONS (28)
  - Monarthritis [Unknown]
  - Drug tolerance decreased [Unknown]
  - Varicose vein [Unknown]
  - Bone disorder [Unknown]
  - Cluster headache [Unknown]
  - Peripheral swelling [Not Recovered/Not Resolved]
  - Nerve injury [Unknown]
  - Hypoaesthesia [Unknown]
  - Pain [Unknown]
  - Sciatica [Unknown]
  - Joint swelling [Unknown]
  - Peripheral swelling [Unknown]
  - Gastrooesophageal reflux disease [Unknown]
  - Ulcer [Unknown]
  - Pain in extremity [Unknown]
  - Dyspepsia [Unknown]
  - Drug hypersensitivity [Unknown]
  - Pruritus [Recovered/Resolved]
  - Nausea [Unknown]
  - Erythema [Unknown]
  - Oedema peripheral [Unknown]
  - Abdominal pain upper [Unknown]
  - Rash [Recovered/Resolved]
  - Vomiting [Unknown]
  - Arthralgia [Unknown]
  - Drug dose omission [Recovered/Resolved]
  - Drug ineffective [Unknown]
  - Intentional product misuse [Unknown]
